FAERS Safety Report 8585471-1 (Version None)
Quarter: 2012Q3

REPORT INFORMATION
  Report Type: 
  Country: None (occurrence: None)
  Receive Date: 20120810
  Receipt Date: 20111024
  Transmission Date: 20120928
  Serious: No
  Sender: FDA-Public Use
  Company Number: US-GLAXOSMITHKLINE-A0950508A

PATIENT
  Age: 79 Year
  Sex: Female

DRUGS (3)
  1. METHOCARBAMOL [Concomitant]
  2. NIFEDIPINE [Concomitant]
     Dates: start: 20110601
  3. REQUIP XL [Suspect]
     Indication: RESTLESS LEGS SYNDROME
     Dosage: 3MG PER DAY
     Route: 048
     Dates: start: 20080101

REACTIONS (3)
  - SKIN DISORDER [None]
  - PRURITUS [None]
  - RASH PUSTULAR [None]
